FAERS Safety Report 24701498 (Version 1)
Quarter: 2024Q4

REPORT INFORMATION
  Report Type: Spontaneous
  Country: CN (occurrence: CN)
  Receive Date: 20241205
  Receipt Date: 20241205
  Transmission Date: 20250115
  Serious: Yes (Life-Threatening)
  Sender: BAXTER
  Company Number: None

PATIENT
  Age: 53 Year
  Sex: Female
  Weight: 45 kg

DRUGS (9)
  1. CYCLOPHOSPHAMIDE [Suspect]
     Active Substance: CYCLOPHOSPHAMIDE
     Indication: Anti-neutrophil cytoplasmic antibody positive vasculitis
     Dosage: 0.4 G, ONE TIME IN ONE DAY DILUTED WITH SODIUM CHLORIDE (NS) 500 ML
     Route: 041
     Dates: start: 20241115, end: 20241115
  2. CYCLOPHOSPHAMIDE [Suspect]
     Active Substance: CYCLOPHOSPHAMIDE
     Indication: Nephritis
     Dosage: 0.2 G, ONE TIME IN ONE DAY DILUTED WITH SODIUM CHLORIDE (NS) 500 ML
     Route: 041
     Dates: start: 20241116, end: 20241116
  3. CYCLOPHOSPHAMIDE [Suspect]
     Active Substance: CYCLOPHOSPHAMIDE
     Indication: Antineutrophil cytoplasmic antibody
  4. SODIUM CHLORIDE [Suspect]
     Active Substance: SODIUM CHLORIDE
     Indication: Medication dilution
     Dosage: 500 ML, ONE TIME IN ONE DAY USED TO DILUTE CYCLOPHOSPHAMIDE 0.4 G
     Route: 041
     Dates: start: 20241115, end: 20241115
  5. SODIUM CHLORIDE [Suspect]
     Active Substance: SODIUM CHLORIDE
     Dosage: 500 ML, ONE TIME IN ONE DAY USED TO DILUTE CYCLOPHOSPHAMIDE 0.2 G
     Route: 041
     Dates: start: 20241116, end: 20241116
  6. HUMAN IMMUNOGLOBULIN G [Suspect]
     Active Substance: HUMAN IMMUNOGLOBULIN G
     Indication: Anti-neutrophil cytoplasmic antibody positive vasculitis
     Dosage: 2.5 G, ONE TIME IN ONE DAY
     Route: 041
     Dates: start: 20241117, end: 20241117
  7. HUMAN IMMUNOGLOBULIN G [Suspect]
     Active Substance: HUMAN IMMUNOGLOBULIN G
     Indication: Antineutrophil cytoplasmic antibody
  8. HUMAN IMMUNOGLOBULIN G [Suspect]
     Active Substance: HUMAN IMMUNOGLOBULIN G
     Indication: Nephritis
  9. HUMAN IMMUNOGLOBULIN G [Suspect]
     Active Substance: HUMAN IMMUNOGLOBULIN G
     Indication: Immunomodulatory therapy

REACTIONS (7)
  - Retching [Recovering/Resolving]
  - Hypokalaemia [Recovering/Resolving]
  - Palpitations [Recovering/Resolving]
  - Supraventricular extrasystoles [Unknown]
  - Nausea [Unknown]
  - Asthenia [Unknown]
  - Sinus tachycardia [Unknown]

NARRATIVE: CASE EVENT DATE: 20241118
